FAERS Safety Report 5185640-7 (Version None)
Quarter: 2006Q4

REPORT INFORMATION
  Report Type: 
  Country: None (occurrence: None)
  Receive Date: 20061220
  Receipt Date: 20060817
  Transmission Date: 20070319
  Serious: No
  Sender: FDA-Public Use
  Company Number: US-GLAXOSMITHKLINE-A0617093A

PATIENT
  Sex: Female

DRUGS (1)
  1. NICODERM CQ [Suspect]
     Dates: start: 20060801

REACTIONS (10)
  - ABNORMAL DREAMS [None]
  - APPLICATION SITE IRRITATION [None]
  - CRYING [None]
  - DEPRESSION [None]
  - DYSPNOEA [None]
  - HEADACHE [None]
  - HEART RATE INCREASED [None]
  - NICOTINE DEPENDENCE [None]
  - PAIN IN EXTREMITY [None]
  - PYREXIA [None]
